FAERS Safety Report 5618313-4 (Version None)
Quarter: 2008Q1

REPORT INFORMATION
  Report Type: 
  Country: None (occurrence: None)
  Receive Date: 20080205
  Receipt Date: 20080205
  Transmission Date: 20080703
  Serious: Yes (Hospitalization)
  Sender: FDA-Public Use
  Company Number: None

PATIENT
  Sex: Male
  Weight: 24.3 kg

DRUGS (2)
  1. CEFEPIME [Suspect]
     Indication: NEUTROPENIA
     Dosage: 1 GRAM ONCE IV
     Route: 042
     Dates: start: 20080115, end: 20080115
  2. CEFEPIME [Suspect]
     Indication: PYREXIA
     Dosage: 1 GRAM ONCE IV
     Route: 042
     Dates: start: 20080115, end: 20080115

REACTIONS (3)
  - HYPERHIDROSIS [None]
  - HYPOTENSION [None]
  - LETHARGY [None]
